FAERS Safety Report 9817534 (Version 2)
Quarter: 2014Q1

REPORT INFORMATION
  Report Type: Spontaneous
  Country: GB (occurrence: GB)
  Receive Date: 20140115
  Receipt Date: 20140115
  Transmission Date: 20141002
  Serious: Yes (Other)
  Sender: FDA-Public Use
  Company Number: GB-BEH-2013039497

PATIENT
  Age: 73 Year
  Sex: Female

DRUGS (1)
  1. PRIVIGEN [Suspect]
     Dosage: FOUR INFUSIONS

REACTIONS (3)
  - Cerebrovascular accident [Unknown]
  - Blood pressure increased [Unknown]
  - Hemiplegia [Not Recovered/Not Resolved]
